APPROVED DRUG PRODUCT: ARGATROBAN
Active Ingredient: ARGATROBAN
Strength: 250MG/2.5ML (100MG/ML)
Dosage Form/Route: INJECTABLE;INJECTION
Application: N020883 | Product #001
Applicant: SANDOZ INC
Approved: Jun 30, 2000 | RLD: Yes | RS: No | Type: DISCN